FAERS Safety Report 24800557 (Version 1)
Quarter: 2025Q1

REPORT INFORMATION
  Report Type: Spontaneous
  Country: US (occurrence: US)
  Receive Date: 20250102
  Receipt Date: 20250102
  Transmission Date: 20250409
  Serious: No
  Sender: MERCK
  Company Number: US-009507513-2412USA008569

PATIENT
  Sex: Female

DRUGS (25)
  1. WINREVAIR [Suspect]
     Active Substance: SOTATERCEPT-CSRK
     Indication: Product used for unknown indication
  2. REMODULIN [Suspect]
     Active Substance: TREPROSTINIL
     Indication: Pulmonary arterial hypertension
     Route: 058
     Dates: start: 20221213
  3. BUMETANIDE [Concomitant]
     Active Substance: BUMETANIDE
  4. SYNTHROID [Concomitant]
     Active Substance: LEVOTHYROXINE SODIUM
  5. KETAMINE HYDROCHLORIDE [Concomitant]
     Active Substance: KETAMINE HYDROCHLORIDE
  6. LECITHIN [Concomitant]
     Active Substance: LECITHIN
  7. TADALAFIL [Concomitant]
     Active Substance: TADALAFIL
  8. LIPITOR [Concomitant]
     Active Substance: ATORVASTATIN CALCIUM
  9. ASPIRIN [Concomitant]
     Active Substance: ASPIRIN
  10. ALLOPURINOL [Concomitant]
     Active Substance: ALLOPURINOL
  11. TRAMADOL HCL [Concomitant]
     Active Substance: TRAMADOL HYDROCHLORIDE
  12. CLONIDINE [Concomitant]
     Active Substance: CLONIDINE
  13. KETOPROFEN [Concomitant]
     Active Substance: KETOPROFEN
  14. OXYGEN [Concomitant]
     Active Substance: OXYGEN
  15. SPIRONOLACTONE [Concomitant]
     Active Substance: SPIRONOLACTONE
  16. BACLOFEN [Concomitant]
     Active Substance: BACLOFEN
  17. LIDOCAINE HYDROCHLORIDE [Concomitant]
     Active Substance: LIDOCAINE HYDROCHLORIDE
  18. BUTALBITAL, ACETAMINOPHEN, AND CAFFEINE [Concomitant]
     Active Substance: ACETAMINOPHEN\BUTALBITAL\CAFFEINE
  19. OMEPRAZOLE [Concomitant]
     Active Substance: OMEPRAZOLE
  20. HYDROXYZINE HYDROCHLORIDE [Concomitant]
     Active Substance: HYDROXYZINE HYDROCHLORIDE
  21. DIGOXIN [Concomitant]
     Active Substance: DIGOXIN
  22. AMITRIPTYLINE HYDROCHLORIDE [Concomitant]
     Active Substance: AMITRIPTYLINE HYDROCHLORIDE
  23. GABAPENTIN [Concomitant]
     Active Substance: GABAPENTIN
  24. POLOXAMER [Concomitant]
     Active Substance: POLOXAMER
  25. AMBRISENTAN [Concomitant]
     Active Substance: AMBRISENTAN

REACTIONS (1)
  - Haemoglobin increased [Unknown]
